FAERS Safety Report 5805052-X (Version None)
Quarter: 2008Q3

REPORT INFORMATION
  Report Type: 
  Country: None (occurrence: None)
  Receive Date: 20080709
  Receipt Date: 20080627
  Transmission Date: 20090109
  Serious: Yes (Hospitalization)
  Sender: FDA-Public Use
  Company Number: FR-PFIZER INC-2008054989

PATIENT
  Age: 81 Year
  Sex: Male

DRUGS (3)
  1. LYRICA [Suspect]
     Indication: NEURALGIA
     Route: 048
  2. HYDROCHLOROTHIAZIDE [Concomitant]
     Route: 048
  3. DILTIAZEM HYDROCHLORIDE [Concomitant]
     Dosage: DAILY DOSE:360MG
     Route: 048

REACTIONS (2)
  - BRADYCARDIA [None]
  - CARDIAC FAILURE [None]
